FAERS Safety Report 10388798 (Version 1)
Quarter: 2014Q1

REPORT INFORMATION
  Report Type: Spontaneous
  Country: US (occurrence: None)
  Receive Date: 20140306
  Receipt Date: 20140306
  Transmission Date: 20141002
  Serious: Yes (Hospitalization)
  Sender: FDA-Public Use
  Company Number: 163-21880-13064475

PATIENT
  Age: 71 Year
  Sex: Female

DRUGS (1)
  1. REVLIMID (LENALIDOMIDE) (5 MILLIGRAM, CAPSULES) [Suspect]
     Indication: PLASMA CELL MYELOMA
     Route: 048
     Dates: start: 20110816

REACTIONS (7)
  - Diarrhoea infectious [None]
  - Hyperhidrosis [None]
  - Cough [None]
  - Contusion [None]
  - Fatigue [None]
  - Diarrhoea [None]
  - White blood cell count decreased [None]
